FAERS Safety Report 15432250 (Version 2)
Quarter: 2018Q4

REPORT INFORMATION
  Report Type: Spontaneous
  Country: US (occurrence: US)
  Receive Date: 20180926
  Receipt Date: 20181005
  Transmission Date: 20190204
  Serious: No
  Sender: FDA-Public Use
  Company Number: US-TEVA-2018-US-956645

PATIENT
  Age: 19 Year
  Sex: Female

DRUGS (1)
  1. APRI 28 [Suspect]
     Active Substance: DESOGESTREL\ETHINYL ESTRADIOL
     Indication: ORAL CONTRACEPTION
     Dosage: 0.15 MG/0.03MG
     Dates: start: 20180911

REACTIONS (2)
  - Acne [Unknown]
  - Skin disorder [Unknown]

NARRATIVE: CASE EVENT DATE: 20180911
